FAERS Safety Report 17179547 (Version 1)
Quarter: 2019Q4

REPORT INFORMATION
  Report Type: Report from Study
  Country: IT (occurrence: IT)
  Receive Date: 20191219
  Receipt Date: 20191219
  Transmission Date: 20200122
  Serious: Yes (Death)
  Sender: FDA-Public Use
  Company Number: IT-TEVA-2019-IT-1152621

PATIENT
  Age: 80 Year
  Sex: Female

DRUGS (8)
  1. OLANZAPINA TEVA [Suspect]
     Active Substance: OLANZAPINE
     Indication: DELUSIONAL PERCEPTION
     Dosage: 10 MG PER DAY
     Route: 048
     Dates: start: 20150113, end: 20191104
  2. CARDIOASPIRIN [Concomitant]
     Active Substance: ASPIRIN
     Dosage: 1 DOSAGE FORMS
     Dates: start: 20140131, end: 20191104
  3. HALDOL [Suspect]
     Active Substance: HALOPERIDOL
     Indication: DELUSIONAL PERCEPTION
     Dosage: 5 GTT PER DAY
     Route: 048
     Dates: start: 20150207, end: 20191104
  4. FERROUS SULFATE. [Concomitant]
     Active Substance: FERROUS SULFATE
     Dosage: 1 DOSAGE FORMS
     Dates: start: 20180420, end: 20191104
  5. LANSOPRAZOLE. [Concomitant]
     Active Substance: LANSOPRAZOLE
     Dosage: 30 MG
     Dates: start: 20180416, end: 20191104
  6. ACETAZOLAMIDE. [Concomitant]
     Active Substance: ACETAZOLAMIDE
     Dosage: 250MG
     Dates: start: 20181107, end: 20191104
  7. LORAZEPAM. [Concomitant]
     Active Substance: LORAZEPAM
     Dosage: 2500 MG
     Dates: start: 20140131, end: 20191104
  8. ENALAPRIL [Concomitant]
     Active Substance: ENALAPRIL
     Dosage: 5 MG
     Dates: start: 20180502, end: 20191104

REACTIONS (1)
  - Cardio-respiratory arrest [Fatal]

NARRATIVE: CASE EVENT DATE: 20191105
